FAERS Safety Report 25380416 (Version 5)
Quarter: 2025Q3

REPORT INFORMATION
  Report Type: Spontaneous
  Country: SG (occurrence: SG)
  Receive Date: 20250530
  Receipt Date: 20250718
  Transmission Date: 20251021
  Serious: Yes (Hospitalization)
  Sender: TAKEDA
  Company Number: SG-TAKEDA-2025TUS050524

PATIENT
  Age: 53 Year
  Sex: Male

DRUGS (2)
  1. FRUZAQLA [Suspect]
     Active Substance: FRUQUINTINIB
     Indication: Colorectal cancer metastatic
  2. FRUZAQLA [Suspect]
     Active Substance: FRUQUINTINIB

REACTIONS (1)
  - Influenza [Recovered/Resolved]
